FAERS Safety Report 14618601 (Version 1)
Quarter: 2018Q1

REPORT INFORMATION
  Report Type: Report from Study
  Country: None (occurrence: US)
  Receive Date: 20180309
  Receipt Date: 20180309
  Transmission Date: 20180509
  Serious: Yes (Hospitalization)
  Sender: FDA-Public Use
  Company Number: US-BIOVITRUM-2018US0220

PATIENT
  Sex: Male

DRUGS (1)
  1. ORFADIN [Suspect]
     Active Substance: NITISINONE
     Indication: TYROSINAEMIA
     Dates: start: 20140425

REACTIONS (4)
  - Renal failure [Unknown]
  - Hepatic cirrhosis [Unknown]
  - Diarrhoea [Unknown]
  - Abdominal pain lower [Unknown]
